FAERS Safety Report 5303280-3 (Version None)
Quarter: 2007Q2

REPORT INFORMATION
  Report Type: 
  Country: None (occurrence: None)
  Receive Date: 20070420
  Receipt Date: 20070418
  Transmission Date: 20071010
  Serious: Yes (Hospitalization)
  Sender: FDA-Public Use
  Company Number: US-GLAXOSMITHKLINE-A0647831A

PATIENT
  Sex: Female

DRUGS (5)
  1. COREG [Suspect]
     Indication: MYOCARDIAL INFARCTION
     Dosage: 3.125MG TWICE PER DAY
     Route: 048
     Dates: start: 20050101
  2. IMDUR [Concomitant]
  3. ASPIRIN [Concomitant]
  4. VITAMIN [Concomitant]
  5. COUMADIN [Concomitant]

REACTIONS (2)
  - DIZZINESS [None]
  - HAEMORRHAGE [None]
